FAERS Safety Report 4617501-3 (Version None)
Quarter: 2005Q1

REPORT INFORMATION
  Report Type: 
  Country: None (occurrence: None)
  Receive Date: 20050324
  Receipt Date: 20050308
  Transmission Date: 20050727
  Serious: Yes (Hospitalization)
  Sender: FDA-Public Use
  Company Number: 200511860US

PATIENT
  Sex: Male
  Weight: 150.7 kg

DRUGS (6)
  1. APIDRA [Suspect]
     Indication: DIABETES MELLITUS
     Dosage: DOSE: UNK (VARIABLE REGIMEN)
     Route: 058
     Dates: start: 20050202, end: 20050305
  2. LANTUS [Suspect]
     Indication: DIABETES MELLITUS
     Dosage: DOSE: UNK
  3. ATENOLOL [Concomitant]
     Indication: HYPERTENSION
     Route: 048
     Dates: start: 19990101
  4. LISINOPRIL [Concomitant]
     Indication: HYPERTENSION
     Route: 048
     Dates: start: 19990301
  5. FUROSEMIDE [Concomitant]
     Indication: OEDEMA
     Route: 048
     Dates: start: 19990101
  6. CLONIDINE [Concomitant]
     Indication: NEUROPATHY
     Route: 048
     Dates: start: 20030801

REACTIONS (1)
  - MYOCARDIAL INFARCTION [None]
